FAERS Safety Report 16416035 (Version 1)
Quarter: 2019Q2

REPORT INFORMATION
  Report Type: Report from Study
  Country: US (occurrence: US)
  Receive Date: 20190611
  Receipt Date: 20190611
  Transmission Date: 20190711
  Serious: Yes (Hospitalization)
  Sender: FDA-Public Use
  Company Number: US-JNJFOC-20190612251

PATIENT
  Age: 86 Year
  Sex: Female

DRUGS (5)
  1. ESTRACE [Concomitant]
     Active Substance: ESTRADIOL
  2. ANUSOL-HC [Concomitant]
  3. PRED FORTE [Concomitant]
     Active Substance: PREDNISOLONE ACETATE
  4. IMBRUVICA [Suspect]
     Active Substance: IBRUTINIB
     Indication: LYMPHOCYTIC LEUKAEMIA
     Route: 048
     Dates: start: 201904, end: 2019
  5. LEVOTHYROXINE. [Concomitant]
     Active Substance: LEVOTHYROXINE

REACTIONS (1)
  - Personality change [Not Recovered/Not Resolved]

NARRATIVE: CASE EVENT DATE: 20190526
